FAERS Safety Report 6369136-2 (Version None)
Quarter: 2009Q3

REPORT INFORMATION
  Report Type: 
  Country: None (occurrence: None)
  Receive Date: 20090917
  Receipt Date: 20090917
  Transmission Date: 20100115
  Serious: Yes (Life-Threatening)
  Sender: FDA-Public Use
  Company Number: None

PATIENT
  Age: 41 Year
  Sex: Female
  Weight: 49.4421 kg

DRUGS (2)
  1. KLONOPIN [Suspect]
     Indication: ANXIETY
     Dosage: 1/2 A PILL 1 - 2 X A DAY PO
     Route: 048
     Dates: start: 20090707, end: 20090729
  2. CYMBALTA [Suspect]
     Indication: DEPRESSION
     Dosage: 1 PILL 1X A DAY PO
     Route: 048
     Dates: start: 20090710, end: 20090729

REACTIONS (17)
  - AMNESIA [None]
  - ANXIETY [None]
  - CONVULSION [None]
  - CRYING [None]
  - DELUSION [None]
  - DRUG WITHDRAWAL SYNDROME [None]
  - EATING DISORDER [None]
  - EMOTIONAL DISTRESS [None]
  - HALLUCINATION, AUDITORY [None]
  - INSOMNIA [None]
  - INTENTIONAL SELF-INJURY [None]
  - MUSCLE SPASMS [None]
  - PAIN [None]
  - PARANOIA [None]
  - SEXUAL DYSFUNCTION [None]
  - SUICIDAL IDEATION [None]
  - TREMOR [None]
